FAERS Safety Report 16061134 (Version 1)
Quarter: 2019Q1

REPORT INFORMATION
  Report Type: Spontaneous
  Country: US (occurrence: US)
  Receive Date: 20190312
  Receipt Date: 20190312
  Transmission Date: 20190418
  Serious: No
  Sender: FDA-Public Use
  Company Number: US-ROCHE-2157365

PATIENT
  Age: 19 Year
  Sex: Male

DRUGS (1)
  1. BEVACIZUMAB. [Suspect]
     Active Substance: BEVACIZUMAB
     Indication: RESPIRATORY PAPILLOMA
     Route: 042

REACTIONS (2)
  - Acne [Unknown]
  - Fatigue [Unknown]
